FAERS Safety Report 8177437-0 (Version None)
Quarter: 2012Q1

REPORT INFORMATION
  Report Type: 
  Country: None (occurrence: None)
  Receive Date: 20120301
  Receipt Date: 20120223
  Transmission Date: 20120608
  Serious: Yes (Other)
  Sender: FDA-Public Use
  Company Number: US-BAYER-201028981NA

PATIENT
  Age: 61 Year
  Sex: Male
  Weight: 119.73 kg

DRUGS (64)
  1. OMNISCAN [Suspect]
     Indication: BRAIN STEM SYNDROME
     Dosage: UNK
     Route: 042
     Dates: start: 20010227, end: 20010227
  2. ANTIBIOTICS [Concomitant]
  3. POTASSIUM CHLORIDE [Concomitant]
     Dosage: 30 MG, BID
  4. IMIPRAMINE [Concomitant]
     Dosage: 25 MG, QS
     Dates: start: 20020206
  5. COMPAZINE [Concomitant]
     Dosage: UNK UNK, PRN
  6. ALLOPURINOL [Concomitant]
  7. URECHOLINE [Concomitant]
  8. LEVAQUIN [Concomitant]
  9. PROBIATA [Concomitant]
  10. HYTRIN [Concomitant]
  11. DECADRON [Concomitant]
  12. REGLAN [Concomitant]
  13. COMPAZINE [Concomitant]
  14. PROCRIT [Concomitant]
     Dosage: 400000 U, EVERY WEEK
     Route: 058
  15. ANTIHYPERTENSIVES [Concomitant]
  16. NEXIUM [Concomitant]
     Dosage: 40 MG, PRN
     Dates: start: 20020206
  17. PLENDIL [Concomitant]
     Dosage: 5 MG, QD
     Dates: start: 20100206
  18. ROBITUSSIN DM [DEXTROMETHORPHAN HYDROBROMIDE,ETHANOL,GUAIFENESIN] [Concomitant]
  19. LOMOTIL [Concomitant]
  20. MAGNEVIST [Suspect]
     Dosage: 20 ML, ONCE
     Dates: start: 20020508, end: 20020508
  21. OMNISCAN [Suspect]
     Dosage: UNK
     Dates: start: 20021126, end: 20021126
  22. MULTIHANCE [Suspect]
     Indication: IMAGING PROCEDURE
  23. MELPHALAN HYDROCHLORIDE [Concomitant]
     Dosage: 25 MG, QD
  24. METOLAZONE [Concomitant]
  25. POTASSIUM CHLORIDE [Concomitant]
  26. NEUPOGEN [Concomitant]
  27. OMNISCAN [Suspect]
     Indication: SLEEP APNOEA SYNDROME
     Dosage: UNK
     Route: 042
     Dates: start: 20001016, end: 20001016
  28. OPTIMARK [Suspect]
     Indication: NUCLEAR MAGNETIC RESONANCE IMAGING
     Dosage: UNK
     Dates: start: 20040923, end: 20040923
  29. PREDNISONE [Concomitant]
     Dosage: 120 MG, QD
  30. ATENOLOL [Concomitant]
  31. NEPHROVITE [VIT C,VIT H,B5,B12,B9,B3,B6,B2,B1 HCL] [Concomitant]
  32. ZOFRAN [Concomitant]
  33. ATIVAN [Concomitant]
  34. MAGNEVIST [Suspect]
     Indication: NUCLEAR MAGNETIC RESONANCE IMAGING BRAIN
     Dosage: UNK
     Dates: start: 20020205, end: 20020205
  35. OMNISCAN [Suspect]
     Indication: HEADACHE
     Dosage: UNK
     Dates: start: 20011211, end: 20011211
  36. GADOLINIUM IN UNSPECIFIED DRUG [Suspect]
     Indication: NUCLEAR MAGNETIC RESONANCE IMAGING BRAIN
     Dosage: UNK
     Dates: start: 20070717, end: 20070717
  37. TERAZOSIN HCL [Concomitant]
  38. ROXIN [Concomitant]
  39. VICODIN [Concomitant]
  40. PHENERGAN [Concomitant]
  41. OMNISCAN [Suspect]
     Indication: NUCLEAR MAGNETIC RESONANCE IMAGING
     Dosage: UNK
     Dates: start: 20010815, end: 20010815
  42. OMNISCAN [Suspect]
     Dosage: UNK
     Dates: start: 20020815, end: 20020815
  43. ZAROXOLYN [Concomitant]
     Dosage: 10 MG, QD
     Dates: start: 20020206
  44. GADOLINIUM IN UNSPECIFIED DRUG [Suspect]
     Indication: NUCLEAR MAGNETIC RESONANCE IMAGING
  45. RENACAL [Concomitant]
  46. IMIPRAMINE [Concomitant]
  47. OMNISCAN [Suspect]
     Indication: NUCLEAR MAGNETIC RESONANCE IMAGING BRAIN
     Dosage: UNK
     Dates: start: 19991206, end: 19991206
  48. OMNISCAN [Suspect]
     Dosage: UNK
     Dates: start: 20100227, end: 20100227
  49. PROHANCE [Suspect]
     Indication: IMAGING PROCEDURE
  50. MULTI-VITAMINS [Concomitant]
  51. LASIX [Concomitant]
     Dosage: 80 MG, QD
  52. ALBUTEROL [Concomitant]
  53. OMNISCAN [Suspect]
     Indication: ABDOMEN SCAN
     Dosage: 20 ML, ONCE
     Route: 042
     Dates: start: 20010730, end: 20010730
  54. IRON [IRON] [Concomitant]
  55. AVAPRO [Concomitant]
     Dosage: 10 MG, QD
     Dates: start: 20020206
  56. EPOGEN [Concomitant]
  57. LEXAPRO [Concomitant]
  58. RHINOCORT [Concomitant]
  59. NEPHRO-VITE [VITAMINS NOS] [Concomitant]
  60. TPN [Concomitant]
  61. PHOSLO [Concomitant]
  62. ASTELIN [Concomitant]
  63. ACETAMINOPHEN [Concomitant]
  64. NASACORT AQ [Concomitant]

REACTIONS (11)
  - MOBILITY DECREASED [None]
  - SKIN DISCOLOURATION [None]
  - OEDEMA PERIPHERAL [None]
  - DRY SKIN [None]
  - NEPHROGENIC SYSTEMIC FIBROSIS [None]
  - RASH MACULO-PAPULAR [None]
  - JOINT RANGE OF MOTION DECREASED [None]
  - SKIN INDURATION [None]
  - OEDEMA [None]
  - JOINT STIFFNESS [None]
  - PRURITUS GENERALISED [None]
